FAERS Safety Report 7354874-5 (Version None)
Quarter: 2011Q1

REPORT INFORMATION
  Report Type: 
  Country: None (occurrence: None)
  Receive Date: 20110311
  Receipt Date: 20110311
  Transmission Date: 20110831
  Serious: Yes (Other)
  Sender: FDA-Public Use
  Company Number: None

PATIENT
  Sex: Female
  Weight: 56.6996 kg

DRUGS (1)
  1. PRIMIDONE [Suspect]
     Indication: EPILEPSY
     Dosage: 250MG TWICE DAILY, ORALLY(THERAPY DATES:UNKNOWN - I WAS ON BRAND + SWITCHED TO GENERIC PRIOR TO 1995
     Route: 048

REACTIONS (3)
  - AURA [None]
  - CONVULSION [None]
  - PRODUCT SUBSTITUTION ISSUE [None]
